FAERS Safety Report 4601774-7 (Version None)
Quarter: 2005Q1

REPORT INFORMATION
  Report Type: 
  Country: None (occurrence: None)
  Receive Date: 20050128
  Receipt Date: 20040817
  Transmission Date: 20050727
  Serious: Yes (Other)
  Sender: FDA-Public Use
  Company Number: 139890USA

PATIENT
  Age: 60 Year
  Sex: Female

DRUGS (2)
  1. COPAXONE [Suspect]
     Dosage: 20 MILLIGRAM QD; SUBCUTANEOUS
     Route: 058
     Dates: start: 20040601
  2. DILANTIN [Concomitant]

REACTIONS (2)
  - ABASIA [None]
  - NUCLEAR MAGNETIC RESONANCE IMAGING ABNORMAL [None]
